FAERS Safety Report 12262124 (Version 3)
Quarter: 2016Q2

REPORT INFORMATION
  Report Type: Spontaneous
  Country: JP (occurrence: JP)
  Receive Date: 20160413
  Receipt Date: 20160523
  Transmission Date: 20160815
  Serious: Yes (Life-Threatening, Hospitalization, Disabling, Other)
  Sender: FDA-Public Use
  Company Number: JP-009507513-1604JPN006210

PATIENT
  Age: 48 Year
  Sex: Female
  Weight: 49 kg

DRUGS (9)
  1. FENTANYL. [Concomitant]
     Active Substance: FENTANYL
     Indication: ANAESTHESIA PROCEDURE
     Dosage: 0.1 MG DAILY, DIVIDED DOSE FREQUENCY UNKNOWN
     Route: 042
     Dates: start: 20160318
  2. ANAPEINE [Concomitant]
     Active Substance: ROPIVACAINE HYDROCHLORIDE
     Indication: NERVE BLOCK
     Dosage: 20 ML DAILY, DIVIDED DOSE FREQUENCY UNKNOWN
     Route: 051
     Dates: start: 20160318
  3. OXYGEN. [Concomitant]
     Active Substance: OXYGEN
     Dosage: 6 L / MIN, DAILY DOSE UNKNOWN
     Route: 055
     Dates: start: 20160318
  4. ESLAX INTRAVENOUS 25MG/2.5ML [Concomitant]
     Active Substance: ROCURONIUM BROMIDE
     Indication: NEUROMUSCULAR BLOCKING THERAPY
     Dosage: 30 MG DAILY, DIVIDED DOSE FREQUENCY UNKNOWN
     Route: 042
     Dates: start: 20160318
  5. SUPRANE [Concomitant]
     Active Substance: DESFLURANE
     Indication: MAINTENANCE OF ANAESTHESIA
     Dosage: 4 % DAILY, DIVIDED DOSE FREQUENCY UNKNOWN
     Route: 055
     Dates: start: 20160318
  6. BRIDION [Suspect]
     Active Substance: SUGAMMADEX
     Indication: NEUROMUSCULAR BLOCKADE REVERSAL
     Dosage: 200 MG, DAILY
     Route: 042
     Dates: start: 20160318, end: 20160318
  7. PROPOFOL. [Concomitant]
     Active Substance: PROPOFOL
     Indication: ANAESTHESIA PROCEDURE
     Dosage: 60 MG DAILY, DIVIDED DOSE FREQUENCY UNKNOWN
     Route: 042
     Dates: start: 20160318
  8. ESLAX INTRAVENOUS 25MG/2.5ML [Concomitant]
     Active Substance: ROCURONIUM BROMIDE
     Dosage: 20 MG / HOUR, DAILY DOSE UNKNOWN
     Route: 042
     Dates: start: 20160318
  9. POVIDONE-IODINE. [Concomitant]
     Active Substance: POVIDONE-IODINE
     Dosage: DAILY DOSE UNKNOWN
     Route: 061
     Dates: start: 20160318

REACTIONS (5)
  - Laryngeal oedema [Recovered/Resolved]
  - Nasal congestion [Recovered/Resolved]
  - Respiratory arrest [Recovered/Resolved]
  - Dysphonia [Recovered/Resolved]
  - Eyelid oedema [Recovered/Resolved]

NARRATIVE: CASE EVENT DATE: 20160318
